FAERS Safety Report 10038491 (Version 3)
Quarter: 2014Q2

REPORT INFORMATION
  Report Type: Spontaneous
  Country: DE (occurrence: DE)
  Receive Date: 20140326
  Receipt Date: 20140529
  Transmission Date: 20141212
  Serious: Yes (Hospitalization)
  Sender: FDA-Public Use
  Company Number: DE-BAYER-2014-044855

PATIENT
  Age: 54 Year
  Sex: Female
  Weight: 65 kg

DRUGS (4)
  1. GADOVIST [Suspect]
     Indication: NUCLEAR MAGNETIC RESONANCE IMAGING BREAST
     Dosage: 15 ML, ONCE
     Route: 042
     Dates: start: 20140317, end: 20140317
  2. GADOVIST [Suspect]
     Indication: BREAST CANCER
  3. PANTOPRAZOLE [Concomitant]
     Dosage: 20 MG, UNK
  4. ASA [Concomitant]

REACTIONS (5)
  - Paraparesis [Recovered/Resolved]
  - Abasia [Recovered/Resolved]
  - Abdominal discomfort [None]
  - Back pain [None]
  - Central nervous system lesion [None]
